FAERS Safety Report 18831932 (Version 1)
Quarter: 2021Q1

REPORT INFORMATION
  Report Type: Spontaneous
  Country: US (occurrence: US)
  Receive Date: 20210201
  Receipt Date: 20210201
  Transmission Date: 20210419
  Serious: No
  Sender: FDA-Public Use
  Company Number: US-ABBVIE-21K-163-3715049-00

PATIENT
  Age: 37 Year
  Sex: Female
  Weight: 93.98 kg

DRUGS (3)
  1. CIPROFLOXACIN. [Concomitant]
     Active Substance: CIPROFLOXACIN
     Indication: EYE DISORDER
  2. HUMIRA [Suspect]
     Active Substance: ADALIMUMAB
     Indication: COLITIS ULCERATIVE
     Route: 058
     Dates: start: 20201229
  3. PREDNISONE. [Concomitant]
     Active Substance: PREDNISONE
     Indication: COLITIS ULCERATIVE

REACTIONS (6)
  - Injection site pain [Recovered/Resolved]
  - Device issue [Recovered/Resolved]
  - Incorrect dose administered [Recovered/Resolved]
  - Injection site swelling [Not Recovered/Not Resolved]
  - Injection site inflammation [Unknown]
  - Injection site haemorrhage [Recovered/Resolved]

NARRATIVE: CASE EVENT DATE: 20201229
